FAERS Safety Report 7591383-2 (Version None)
Quarter: 2011Q3

REPORT INFORMATION
  Report Type: 
  Country: None (occurrence: None)
  Receive Date: 20110706
  Receipt Date: 20110624
  Transmission Date: 20111222
  Serious: Yes (Hospitalization)
  Sender: FDA-Public Use
  Company Number: AU-AMGEN-AUSCT2011033314

PATIENT

DRUGS (4)
  1. DOCETAXEL [Concomitant]
     Indication: GASTROOESOPHAGEAL CANCER
  2. FLUOROURACIL [Concomitant]
  3. PANITUMUMAB [Suspect]
     Indication: GASTROOESOPHAGEAL CANCER
  4. CISPLATIN [Concomitant]
     Indication: GASTROOESOPHAGEAL CANCER

REACTIONS (2)
  - DEHYDRATION [None]
  - SYNCOPE [None]
